FAERS Safety Report 23204067 (Version 1)
Quarter: 2023Q4

REPORT INFORMATION
  Report Type: Spontaneous
  Country: GB (occurrence: GB)
  Receive Date: 20231120
  Receipt Date: 20231120
  Transmission Date: 20240109
  Serious: Yes (Other)
  Sender: FDA-Public Use
  Company Number: GB-MHRA-ADR 28314762

PATIENT
  Sex: Male

DRUGS (1)
  1. FEBUXOSTAT [Suspect]
     Active Substance: FEBUXOSTAT
     Indication: Product used for unknown indication
     Dosage: 40 MILLIGRAM, ONCE A DAY
     Route: 065

REACTIONS (8)
  - Blood pressure increased [Unknown]
  - Hot flush [Unknown]
  - Sleep disorder [Unknown]
  - Pollakiuria [Unknown]
  - Anxiety [Unknown]
  - Mental disorder [Unknown]
  - Joint effusion [Unknown]
  - Malaise [Unknown]
